FAERS Safety Report 6866875-1 (Version None)
Quarter: 2010Q3

REPORT INFORMATION
  Report Type: 
  Country: None (occurrence: None)
  Receive Date: 20100722
  Receipt Date: 20100712
  Transmission Date: 20110219
  Serious: Yes (Hospitalization)
  Sender: FDA-Public Use
  Company Number: US-JNJFOC-20100703543

PATIENT
  Sex: Female
  Weight: 95.26 kg

DRUGS (12)
  1. SIMPONI [Suspect]
     Indication: RHEUMATOID ARTHRITIS
     Route: 058
  2. SIMPONI [Suspect]
     Route: 058
  3. METHOTREXATE [Concomitant]
     Indication: RHEUMATOID ARTHRITIS
  4. IRON [Concomitant]
     Indication: ANAEMIA
  5. NEXIUM [Concomitant]
     Indication: GASTRIC DISORDER
  6. PROCTOFOAM [Concomitant]
     Indication: HAEMORRHOIDS
  7. FOLIC ACID [Concomitant]
     Indication: PROPHYLAXIS
  8. CYCLOBENZAPRINE [Concomitant]
     Indication: GASTRIC DISORDER
  9. DIOVAN [Concomitant]
     Indication: HYPERTENSION
  10. LABETALOL HCL [Concomitant]
     Indication: HYPERTENSION
  11. GLIPIZIDE [Concomitant]
     Indication: DIABETES MELLITUS
  12. JANUMET [Concomitant]
     Indication: DIABETES MELLITUS

REACTIONS (10)
  - ANAEMIA [None]
  - COLITIS [None]
  - DEHYDRATION [None]
  - GASTRIC ULCER [None]
  - GASTRITIS [None]
  - HAEMORRHOIDS [None]
  - HIATUS HERNIA [None]
  - INAPPROPRIATE SCHEDULE OF DRUG ADMINISTRATION [None]
  - INCORRECT STORAGE OF DRUG [None]
  - POLYP [None]
